FAERS Safety Report 7407313-X (Version None)
Quarter: 2011Q2

REPORT INFORMATION
  Report Type: 
  Country: None (occurrence: None)
  Receive Date: 20110411
  Receipt Date: 20110331
  Transmission Date: 20111010
  Serious: No
  Sender: FDA-Public Use
  Company Number: DE-ASTRAZENECA-2011SE12871

PATIENT
  Sex: Male

DRUGS (4)
  1. SEROQUEL XR [Suspect]
     Route: 048
  2. SEROQUEL XR [Suspect]
     Indication: PERSONALITY DISORDER
     Route: 048
     Dates: start: 20101115, end: 20110306
  3. SEROQUEL XR [Suspect]
     Indication: DEPRESSION
     Route: 048
     Dates: start: 20101115, end: 20110306
  4. SEROQUEL XR [Suspect]
     Route: 048

REACTIONS (7)
  - DRY MOUTH [None]
  - HAEMATOCHEZIA [None]
  - DIZZINESS [None]
  - ASTHENIA [None]
  - NAUSEA [None]
  - HEPATIC PAIN [None]
  - INTRAOCULAR PRESSURE INCREASED [None]
